FAERS Safety Report 4488430-3 (Version None)
Quarter: 2004Q4

REPORT INFORMATION
  Report Type: 
  Country: None (occurrence: None)
  Receive Date: 20041026
  Receipt Date: 20041011
  Transmission Date: 20050328
  Serious: Yes (Hospitalization)
  Sender: FDA-Public Use
  Company Number: 2004-BP-09575BP

PATIENT
  Age: 74 Year
  Sex: Female

DRUGS (2)
  1. SPIRIVA [Suspect]
     Indication: CHRONIC OBSTRUCTIVE AIRWAYS DISEASE
     Dosage: 18 MCG (18 MCG, 1 IN 1 D), IH
     Route: 055
     Dates: start: 20041001
  2. SPIRIVA [Suspect]

REACTIONS (4)
  - APHONIA [None]
  - DYSPHAGIA [None]
  - LARYNGOSPASM [None]
  - PHARMACEUTICAL PRODUCT COMPLAINT [None]
